FAERS Safety Report 8134833-5 (Version None)
Quarter: 2012Q1

REPORT INFORMATION
  Report Type: 
  Country: None (occurrence: None)
  Receive Date: 20120214
  Receipt Date: 20120209
  Transmission Date: 20120608
  Serious: Yes (Hospitalization, Other)
  Sender: FDA-Public Use
  Company Number: US-PFIZER INC-2011197880

PATIENT
  Sex: Female

DRUGS (7)
  1. LEVOXYL [Concomitant]
     Indication: HYPOTHYROIDISM
     Dosage: 50 UG, 1X/DAY
  2. GLUCOPHAGE [Concomitant]
     Indication: DIABETES MELLITUS
     Dosage: 500 MG, 2X/DAY
  3. BEXTRA [Suspect]
     Indication: ANTIINFLAMMATORY THERAPY
     Dosage: 20 MG, 2X/DAY
     Dates: start: 20040324
  4. BEXTRA [Suspect]
     Indication: MUSCULOSKELETAL PAIN
     Dosage: 20 MG, 2X/DAY
     Dates: start: 20040520
  5. AMARYL [Concomitant]
     Indication: DIABETES MELLITUS
     Dosage: 4 MG, 1X/DAY
     Route: 048
  6. NEURONTIN [Concomitant]
     Indication: MUSCLE SPASMS
     Dosage: 600 MG, UNK
  7. BEXTRA [Suspect]
     Indication: BACK PAIN
     Dosage: 20 MG, 2X/DAY
     Dates: start: 20041008

REACTIONS (9)
  - MITRAL VALVE INCOMPETENCE [None]
  - RESPIRATORY FAILURE [None]
  - BUNDLE BRANCH BLOCK LEFT [None]
  - CARDIOMEGALY [None]
  - PNEUMONIA [None]
  - CARDIAC FAILURE CONGESTIVE [None]
  - LEFT ATRIAL DILATATION [None]
  - CONGESTIVE CARDIOMYOPATHY [None]
  - CORONARY ARTERY DISEASE [None]
